FAERS Safety Report 7757365-2 (Version None)
Quarter: 2011Q3

REPORT INFORMATION
  Report Type: 
  Country: None (occurrence: None)
  Receive Date: 20110916
  Receipt Date: 20110913
  Transmission Date: 20111222
  Serious: Yes (Death)
  Sender: FDA-Public Use
  Company Number: MX-SANOFI-AVENTIS-2011SA059842

PATIENT
  Age: 93 Year
  Sex: Male

DRUGS (1)
  1. PLAVIX [Suspect]
     Route: 048
     Dates: start: 20050101, end: 20110701

REACTIONS (4)
  - PANCREATIC CARCINOMA [None]
  - COLON CANCER [None]
  - RESPIRATORY FAILURE [None]
  - HEPATIC NEOPLASM MALIGNANT [None]
